FAERS Safety Report 8978998 (Version 2)
Quarter: 2013Q2

REPORT INFORMATION
  Report Type: Spontaneous
  Country: FR (occurrence: FR)
  Receive Date: 20121221
  Receipt Date: 20130421
  Transmission Date: 20140414
  Serious: Yes (Disabling)
  Sender: FDA-Public Use
  Company Number: FR-B.I. PHARMACEUTICALS,INC./RIDGEFIELD-2012-FF-01963FF

PATIENT
  Age: 45 Year
  Sex: Male

DRUGS (8)
  1. VIRAMUNE [Suspect]
     Dosage: 400 MG
     Route: 048
     Dates: start: 20070607
  2. KIVEXA [Suspect]
     Dosage: 600/300MG
     Route: 048
     Dates: start: 20070607
  3. HALDOL [Suspect]
     Dosage: 5 MG
     Route: 048
     Dates: start: 2010
  4. LAROXYL [Suspect]
     Dosage: 50 MG
     Route: 048
     Dates: start: 2010
  5. RIVOTRIL [Suspect]
     Dosage: 2 MG
     Route: 048
     Dates: start: 2010
  6. CITALOPRAM HYDROCHLORIDE [Suspect]
     Dosage: 20 MG
     Route: 048
     Dates: start: 2010
  7. LEPTICUR [Suspect]
     Dosage: 10 MG
     Route: 048
  8. MAGNE B6 [Suspect]
     Dosage: 100/10MG
     Route: 048

REACTIONS (2)
  - Peripheral sensory neuropathy [Recovered/Resolved with Sequelae]
  - HIV peripheral neuropathy [Recovered/Resolved with Sequelae]
